FAERS Safety Report 5698460-1 (Version None)
Quarter: 2008Q2

REPORT INFORMATION
  Report Type: 
  Country: None (occurrence: None)
  Receive Date: 20080403
  Receipt Date: 20080326
  Transmission Date: 20081010
  Serious: Yes (Hospitalization)
  Sender: FDA-Public Use
  Company Number: 2008000640

PATIENT
  Age: 48 Year
  Sex: Female

DRUGS (1)
  1. TARCEVA [Suspect]
     Indication: DRUG USE FOR UNKNOWN INDICATION
     Dosage: ORAL
     Route: 048
     Dates: start: 20080105, end: 20080126

REACTIONS (2)
  - EPISTAXIS [None]
  - THROMBOTIC THROMBOCYTOPENIC PURPURA [None]
